FAERS Safety Report 6217378-9 (Version None)
Quarter: 2009Q2

REPORT INFORMATION
  Report Type: 
  Country: None (occurrence: None)
  Receive Date: 20090608
  Receipt Date: 20080822
  Transmission Date: 20091009
  Serious: No
  Sender: FDA-Public Use
  Company Number: A0744139A

PATIENT
  Age: 22 Year
  Sex: Female

DRUGS (1)
  1. WELLBUTRIN XL [Suspect]
     Indication: DEPRESSION
     Dosage: 300MG PER DAY
     Route: 048
     Dates: start: 20080701

REACTIONS (4)
  - ANXIETY [None]
  - NAUSEA [None]
  - SWOLLEN TONGUE [None]
  - TINNITUS [None]
